FAERS Safety Report 9165873 (Version 1)
Quarter: 2013Q1

REPORT INFORMATION
  Report Type: Spontaneous
  Country: US (occurrence: US)
  Receive Date: 20130315
  Receipt Date: 20130315
  Transmission Date: 20140127
  Serious: Yes (Hospitalization, Disabling, Other)
  Sender: FDA-Public Use
  Company Number: US-009507513-0805USA06544

PATIENT
  Sex: Female
  Weight: 105.69 kg

DRUGS (10)
  1. MK-0966 [Suspect]
     Indication: PAIN
     Dosage: 25 MG, BID
     Route: 048
     Dates: start: 1999, end: 20040930
  2. MK-0966 [Suspect]
     Dosage: 25 MG, TID
     Route: 048
     Dates: start: 1999, end: 20040930
  3. ZYPREXA [Concomitant]
     Dosage: 10 MG, BID
  4. PROZAC [Concomitant]
     Dosage: 20 MG, QD
  5. PROSOM [Concomitant]
     Dosage: 2 MG, HS
  6. PROCARDIA XL [Concomitant]
     Dosage: 30 MG, QD
     Route: 048
  7. MOTRIN [Concomitant]
     Dosage: 800 MG, TID
  8. TORADOL [Concomitant]
     Dosage: 60 MG, UNK
     Route: 030
  9. ADVAIR [Concomitant]
     Indication: CHRONIC OBSTRUCTIVE PULMONARY DISEASE
     Dosage: 50/50-250/50, BID
     Route: 055
  10. ADVAIR [Concomitant]
     Indication: TOBACCO USER

REACTIONS (36)
  - Myocardial infarction [Unknown]
  - Sudden cardiac death [Unknown]
  - Ischaemic stroke [Unknown]
  - Adverse event [Not Recovered/Not Resolved]
  - Coronary artery disease [Unknown]
  - Rectocele [Unknown]
  - Cystitis [Unknown]
  - Urethral stenosis [Unknown]
  - Respiratory disorder [Unknown]
  - Cerebrovascular accident [Unknown]
  - Hyperlipidaemia [Unknown]
  - Arteriosclerosis coronary artery [Unknown]
  - Osteopenia [Unknown]
  - Chest pain [Unknown]
  - Chronic obstructive pulmonary disease [Unknown]
  - Urinary tract infection [Unknown]
  - Cystocele [Unknown]
  - Pneumonia [Unknown]
  - Gastrooesophageal reflux disease [Unknown]
  - Uterine disorder [Unknown]
  - Gastroenteritis [Unknown]
  - Haematuria [Unknown]
  - Coronary artery disease [Unknown]
  - Diabetes mellitus [Unknown]
  - Transient ischaemic attack [Unknown]
  - Diarrhoea [Unknown]
  - Cough [Unknown]
  - Skin hyperpigmentation [Unknown]
  - Joint dislocation [Unknown]
  - Diabetic neuropathy [Unknown]
  - Carpal tunnel syndrome [Unknown]
  - Spondylitis [Unknown]
  - Rheumatoid arthritis [Unknown]
  - Insomnia [Unknown]
  - Asthenia [Unknown]
  - Anxiety [Unknown]
